FAERS Safety Report 5380776-X (Version None)
Quarter: 2007Q3

REPORT INFORMATION
  Report Type: 
  Country: None (occurrence: None)
  Receive Date: 20070706
  Receipt Date: 20070626
  Transmission Date: 20080115
  Serious: Yes (Other)
  Sender: FDA-Public Use
  Company Number: B0459832A

PATIENT
  Age: 65 Year
  Sex: Female
  Weight: 87 kg

DRUGS (6)
  1. ADARTREL [Suspect]
     Indication: RESTLESS LEGS SYNDROME
     Route: 048
     Dates: start: 20060116
  2. ATORVASTATIN CALCIUM [Concomitant]
     Dosage: 10MG PER DAY
     Route: 048
     Dates: start: 20050101
  3. AVLOCARDYL [Concomitant]
     Dosage: 40MG PER DAY
     Route: 048
     Dates: start: 20000101
  4. PROZAC [Concomitant]
     Dosage: 20MG PER DAY
     Route: 048
     Dates: start: 20060101
  5. ETIOVEN [Concomitant]
     Indication: VENOUS STASIS
     Dosage: 2UNIT PER DAY
     Route: 048
     Dates: start: 20000101
  6. TRAMADOL HCL [Concomitant]
     Indication: RESTLESS LEGS SYNDROME
     Dosage: 100MG PER DAY
     Route: 048
     Dates: start: 20060101

REACTIONS (2)
  - GAMMA-GLUTAMYLTRANSFERASE INCREASED [None]
  - TRANSAMINASES INCREASED [None]
